FAERS Safety Report 5738175-4 (Version None)
Quarter: 2008Q2

REPORT INFORMATION
  Report Type: 
  Country: None (occurrence: None)
  Receive Date: 20080514
  Receipt Date: 20080502
  Transmission Date: 20081010
  Serious: Yes (Other)
  Sender: FDA-Public Use
  Company Number: CA-GENENTECH-260462

PATIENT
  Sex: Female

DRUGS (1)
  1. RAPTIVA [Suspect]
     Indication: PSORIASIS
     Dosage: 100 MG, 1/WEEK
     Route: 058
     Dates: start: 20080104, end: 20080401

REACTIONS (2)
  - GINGIVAL BLEEDING [None]
  - LYMPHOCYTE MORPHOLOGY ABNORMAL [None]
